FAERS Safety Report 13748773 (Version 1)
Quarter: 2017Q3

REPORT INFORMATION
  Report Type: Spontaneous
  Country: US (occurrence: US)
  Receive Date: 20170712
  Receipt Date: 20170712
  Transmission Date: 20171127
  Serious: Yes (Life-Threatening, Hospitalization, Other)
  Sender: FDA-Public Use
  Company Number: None

PATIENT
  Age: 55 Year
  Sex: Male
  Weight: 83.6 kg

DRUGS (2)
  1. LISINOPRIL. [Suspect]
     Active Substance: LISINOPRIL
     Indication: ACUTE KIDNEY INJURY
     Route: 048
     Dates: start: 20160128, end: 20160304
  2. LISINOPRIL. [Suspect]
     Active Substance: LISINOPRIL
     Indication: RENAL TUBULAR NECROSIS
     Route: 048
     Dates: start: 20160128, end: 20160304

REACTIONS (8)
  - Acute kidney injury [None]
  - Malnutrition [None]
  - Hyperkalaemia [None]
  - Anxiety [None]
  - Diarrhoea [None]
  - Hypomagnesaemia [None]
  - Dehydration [None]
  - Renal tubular necrosis [None]

NARRATIVE: CASE EVENT DATE: 20160304
